FAERS Safety Report 11621707 (Version 9)
Quarter: 2016Q4

REPORT INFORMATION
  Report Type: Report from Study
  Country: CA (occurrence: CA)
  Receive Date: 20151013
  Receipt Date: 20161012
  Transmission Date: 20170206
  Serious: Yes (Hospitalization, Other)
  Sender: FDA-Public Use
  Company Number: CA-ROCHE-1553583

PATIENT
  Age: 67 Year
  Sex: Male
  Weight: 103.51 kg

DRUGS (5)
  1. RITUXAN [Suspect]
     Active Substance: RITUXIMAB
     Indication: GRANULOMATOSIS WITH POLYANGIITIS
     Dosage: ON 29/MAR/2016, HE RECEIVED MOST RECENT INFUSION OF RITUXIMAB.
     Route: 042
     Dates: start: 20140430
  2. SEPTRA [Concomitant]
     Active Substance: SULFAMETHOXAZOLE\TRIMETHOPRIM
  3. METHOTREXATE. [Suspect]
     Active Substance: METHOTREXATE
     Indication: PRODUCT USED FOR UNKNOWN INDICATION
     Route: 065
     Dates: end: 2015
  4. PREDNISONE. [Concomitant]
     Active Substance: PREDNISONE
  5. LANSOPRAZOLE. [Concomitant]
     Active Substance: LANSOPRAZOLE

REACTIONS (9)
  - Pancreatic mass [Unknown]
  - Blood pressure increased [Unknown]
  - Neuroendocrine tumour [Unknown]
  - Dyspnoea [Unknown]
  - Oxygen saturation decreased [Unknown]
  - Haemoptysis [Not Recovered/Not Resolved]
  - Heart rate decreased [Unknown]
  - Pruritus [Recovered/Resolved]
  - Weight decreased [Unknown]

NARRATIVE: CASE EVENT DATE: 2015
